FAERS Safety Report 9807691 (Version 1)
Quarter: 2014Q1

REPORT INFORMATION
  Report Type: Spontaneous
  Country: AU (occurrence: AU)
  Receive Date: 20140110
  Receipt Date: 20140110
  Transmission Date: 20141002
  Serious: Yes (Other)
  Sender: FDA-Public Use
  Company Number: AU-MYLANLABS-2013S1028956

PATIENT
  Age: 39 Year
  Sex: Male

DRUGS (4)
  1. RIXADONE [Suspect]
     Indication: PRODUCT USED FOR UNKNOWN INDICATION
     Dates: start: 201309
  2. KEPPRA [Concomitant]
     Indication: EPILEPSY
  3. DIAFORMIN [Concomitant]
     Indication: DIABETES MELLITUS
  4. LIPITOR [Concomitant]
     Indication: BLOOD CHOLESTEROL

REACTIONS (7)
  - Dehydration [Not Recovered/Not Resolved]
  - Aggression [Not Recovered/Not Resolved]
  - Loss of consciousness [Not Recovered/Not Resolved]
  - Diarrhoea [Not Recovered/Not Resolved]
  - Dysarthria [Not Recovered/Not Resolved]
  - Vomiting [Not Recovered/Not Resolved]
  - Rash [Not Recovered/Not Resolved]
